FAERS Safety Report 15775433 (Version 1)
Quarter: 2018Q4

REPORT INFORMATION
  Report Type: Spontaneous
  Country: US (occurrence: US)
  Receive Date: 20181231
  Receipt Date: 20181231
  Transmission Date: 20190205
  Serious: Yes (Death)
  Sender: FDA-Public Use
  Company Number: US-ROCHE-2237184

PATIENT
  Age: 68 Year
  Sex: Male

DRUGS (2)
  1. AVASTIN [Suspect]
     Active Substance: BEVACIZUMAB
     Indication: BRAIN NEOPLASM MALIGNANT
     Dosage: STRENGTH: 25MG/ML, ?AVASTIN SDV (4ML/VL)
     Route: 042
     Dates: start: 20180927
  2. AVASTIN [Suspect]
     Active Substance: BEVACIZUMAB
     Dosage: STRENGTH: 25MG/ML ONGOING; UNKNOWN?AVASTIN SDV (16ML/VL)
     Route: 042
     Dates: start: 20180927

REACTIONS (3)
  - Off label use [Fatal]
  - Death [Fatal]
  - Intentional product use issue [Fatal]

NARRATIVE: CASE EVENT DATE: 20181203
